FAERS Safety Report 5586236-5 (Version None)
Quarter: 2007Q4

REPORT INFORMATION
  Report Type: 
  Country: None (occurrence: None)
  Receive Date: 20071212
  Receipt Date: 20070515
  Transmission Date: 20080405
  Serious: Yes (Other)
  Sender: FDA-Public Use
  Company Number: USA-2007-0027383

PATIENT
  Age: 58 Year
  Sex: Male

DRUGS (3)
  1. OXYCONTIN [Suspect]
     Indication: PAIN
     Dosage: 40 MG, Q12H, ORAL
     Route: 048
  2. OXYCODONE HCL [Concomitant]
  3. SLEEP AID [Concomitant]

REACTIONS (7)
  - ALTERED VISUAL DEPTH PERCEPTION [None]
  - CONVULSION [None]
  - DRUG DEPENDENCE [None]
  - INADEQUATE ANALGESIA [None]
  - INSOMNIA [None]
  - INTENTIONAL DRUG MISUSE [None]
  - VOMITING [None]
